FAERS Safety Report 7830865-2 (Version None)
Quarter: 2011Q4

REPORT INFORMATION
  Report Type: 
  Country: None (occurrence: None)
  Receive Date: 20111019
  Receipt Date: 20111006
  Transmission Date: 20120403
  Serious: Yes (Other)
  Sender: FDA-Public Use
  Company Number: 1000024741

PATIENT
  Age: 75 Year
  Sex: Male
  Weight: 74 kg

DRUGS (10)
  1. PREDNISOLONE (FLUTICASONE, SALMETEROL) (FLUTICASONE, SALMETEROL) [Concomitant]
  2. SIMVASTATIN [Concomitant]
  3. VIANI (SERETIDE) (SERETIDE) [Concomitant]
  4. BERODUAL RESPIMAT (IPRATROPIUM, FENOTEROL) (IPRATROPIUM, FENOTEROL) [Concomitant]
  5. CROLIFEO (ANTIHYPERTENSIVES) (ANTIHYPERTENSIVES) [Concomitant]
  6. SPIRIVA (TIOTROPIUM BROMIDE) (TIOTROPIUM BROMIDE) [Concomitant]
  7. ATACAND [Concomitant]
  8. FUROSEMIDE [Concomitant]
  9. ROFLUMILAST (ROFLUMILAST) (TABLETS) [Suspect]
     Indication: CHRONIC OBSTRUCTIVE PULMONARY DISEASE
     Dosage: 500 MCG, ORAL
     Route: 048
     Dates: start: 20110222, end: 20110314
  10. ALLOPURINOL [Concomitant]

REACTIONS (1)
  - DIABETES MELLITUS [None]
